FAERS Safety Report 21732062 (Version 1)
Quarter: 2022Q4

REPORT INFORMATION
  Report Type: Report from Study
  Country: US (occurrence: US)
  Receive Date: 20221215
  Receipt Date: 20221215
  Transmission Date: 20230113
  Serious: Yes (Other)
  Sender: FDA-Public Use
  Company Number: US-SA-SAC20221213001046

PATIENT
  Age: 71 Year
  Sex: Female

DRUGS (18)
  1. BELUMOSUDIL MESYLATE [Suspect]
     Active Substance: BELUMOSUDIL MESYLATE
     Indication: Graft versus host disease
     Dosage: 200 MG, BID
     Route: 048
     Dates: start: 20220706
  2. ULTRAM [Concomitant]
     Active Substance: TRAMADOL HYDROCHLORIDE
     Dosage: 50MG, PRN
  3. CLONAZEPAM [Concomitant]
     Active Substance: CLONAZEPAM
  4. CALCIUM [Concomitant]
     Active Substance: CALCIUM
  5. GABAPENTIN [Concomitant]
     Active Substance: GABAPENTIN
  6. PREDNISONE [Concomitant]
     Active Substance: PREDNISONE
  7. OMEPRAZOLE [Concomitant]
     Active Substance: OMEPRAZOLE
     Dosage: 40MG, BID
  8. ALBUTEROL [Concomitant]
     Active Substance: ALBUTEROL
  9. BREO ELLIPTA [Concomitant]
     Active Substance: FLUTICASONE FUROATE\VILANTEROL TRIFENATATE
  10. LISINOPRIL [Concomitant]
     Active Substance: LISINOPRIL
  11. LIPITOR [Concomitant]
     Active Substance: ATORVASTATIN CALCIUM
  12. PILOCARPINE [Concomitant]
     Active Substance: PILOCARPINE
  13. FLONASE [Concomitant]
     Active Substance: FLUTICASONE PROPIONATE
  14. BACTRIM DS [Concomitant]
     Active Substance: SULFAMETHOXAZOLE\TRIMETHOPRIM
     Dosage: 400-80MG
  15. ADVIL [Concomitant]
     Active Substance: IBUPROFEN
  16. VITAMINS [Concomitant]
     Active Substance: VITAMINS
  17. VITAMIN D NOS [Concomitant]
     Active Substance: VITAMIN D NOS
  18. SINGULAIR [Concomitant]
     Active Substance: MONTELUKAST SODIUM

REACTIONS (12)
  - Choking [Unknown]
  - Disease progression [Not Recovered/Not Resolved]
  - Gastrooesophageal reflux disease [Not Recovered/Not Resolved]
  - Dry eye [Recovered/Resolved]
  - Myalgia [Recovered/Resolved]
  - Constipation [Unknown]
  - Cough [Unknown]
  - Diarrhoea [Unknown]
  - Dyspnoea [Recovering/Resolving]
  - Arthralgia [Recovered/Resolved]
  - Fatigue [Recovered/Resolved]
  - Dysphagia [Unknown]
